FAERS Safety Report 9260297 (Version 1)
Quarter: 2013Q2

REPORT INFORMATION
  Report Type: Report from Study
  Country: JP (occurrence: JP)
  Receive Date: 20130429
  Receipt Date: 20130429
  Transmission Date: 20140414
  Serious: Yes (Other)
  Sender: FDA-Public Use
  Company Number: JP-MPIJNJ-2013-00940

PATIENT
  Sex: 0

DRUGS (13)
  1. VELCADE [Suspect]
     Indication: PLASMA CELL MYELOMA
     Dosage: 1.3 MG/M2, UNK
     Route: 042
     Dates: start: 20120709, end: 20120725
  2. VELCADE [Suspect]
     Dosage: 1.0 UNK, UNK
     Route: 042
     Dates: start: 20120905, end: 20120926
  3. OMEPRAZOLE [Suspect]
     Indication: PRODUCT USED FOR UNKNOWN INDICATION
     Dosage: 20 MG, UNK
     Route: 048
     Dates: start: 20120705, end: 20120801
  4. DEXAMETHASONE [Suspect]
     Indication: PRODUCT USED FOR UNKNOWN INDICATION
     Dosage: 19.8 MG, UNK
     Route: 065
     Dates: start: 20120709, end: 20120929
  5. SULFAMETHOXAZOLE, TRIMETHOPRIM [Suspect]
     Indication: PRODUCT USED FOR UNKNOWN INDICATION
     Dosage: 0.5 DF, UNK
     Route: 048
     Dates: start: 20120712, end: 20120728
  6. ACICLOVIR [Suspect]
     Indication: PRODUCT USED FOR UNKNOWN INDICATION
     Dosage: 200 MG, UNK
     Route: 048
     Dates: start: 20120712, end: 20120801
  7. CEFOZOPRAN HYDROCHLORIDE [Concomitant]
     Dosage: 3000 MG, UNK
     Route: 042
     Dates: start: 20120720, end: 20120724
  8. VORICONAZOLE [Suspect]
     Indication: ASPERGILLUS INFECTION
     Dosage: 100 MG, UNK
     Route: 048
     Dates: start: 20120723, end: 20120728
  9. CLOSTRIDIUM BUTYRICUM [Concomitant]
     Dosage: 6 DF, UNK
     Route: 048
     Dates: start: 20120727, end: 20120817
  10. RINGERS                            /00047801/ [Concomitant]
     Dosage: 1000 ML, UNK
     Route: 042
     Dates: start: 20120727, end: 20120806
  11. FUROSEMIDE [Concomitant]
     Dosage: 40 MG, UNK
     Route: 048
     Dates: start: 20120728, end: 20120802
  12. ALBUMIN NORMAL HUMAN SERUM [Concomitant]
     Dosage: 50 ML, UNK
     Route: 042
     Dates: start: 20120730, end: 20120802
  13. TOLVAPTAN [Concomitant]
     Dosage: 7.5 MG, UNK
     Route: 048
     Dates: start: 20120802, end: 20120805

REACTIONS (4)
  - Liver disorder [Recovering/Resolving]
  - Aspergillus infection [Recovering/Resolving]
  - Renal impairment [Recovering/Resolving]
  - Pseudomembranous colitis [Recovering/Resolving]
